FAERS Safety Report 14964066 (Version 1)
Quarter: 2018Q2

REPORT INFORMATION
  Report Type: Spontaneous
  Country: US (occurrence: US)
  Receive Date: 20180510
  Receipt Date: 20180510
  Transmission Date: 20180711
  Serious: Yes (Hospitalization)
  Sender: FDA-Public Use
  Company Number: None

PATIENT
  Age: 39 Year
  Sex: Male
  Weight: 68.7 kg

DRUGS (1)
  1. CISPLATIN. [Suspect]
     Active Substance: CISPLATIN
     Dates: end: 20171018

REACTIONS (8)
  - Dysphagia [None]
  - Skin infection [None]
  - Generalised oedema [None]
  - Neck pain [None]
  - Leukocytosis [None]
  - Oropharyngeal pain [None]
  - Streptococcal sepsis [None]
  - Cellulitis [None]

NARRATIVE: CASE EVENT DATE: 20180430
